FAERS Safety Report 8233623 (Version 2)
Quarter: 2013Q3

REPORT INFORMATION
  Report Type: Report from Study
  Country: AT (occurrence: AT)
  Receive Date: 20111107
  Receipt Date: 20130731
  Transmission Date: 20140515
  Serious: Yes (Hospitalization, Other)
  Sender: FDA-Public Use
  Company Number: PHHY2011AT93893

PATIENT
  Age: 76 Year
  Sex: Male
  Weight: 79 kg

DRUGS (58)
  1. MYCOPHENOLIC ACID [Suspect]
     Indication: IMMUNOSUPPRESSION
     Dosage: 1440 MG, DAILY
     Route: 048
     Dates: start: 20110120
  2. MYCOPHENOLIC ACID [Suspect]
     Dosage: 720 MG, UNK
     Dates: start: 20110221, end: 20110616
  3. MYCOPHENOLIC ACID [Suspect]
     Dosage: 720 MG, DAILY
     Dates: start: 20110926
  4. SANDIMMUN NEORAL [Suspect]
     Indication: IMMUNOSUPPRESSION
     Dosage: 200 MG, DAILY
     Route: 048
     Dates: start: 20110201
  5. SANDIMMUN NEORAL [Suspect]
     Dosage: 100 MG, UNK
     Dates: start: 20110221
  6. SANDIMMUN NEORAL [Suspect]
     Dosage: 200 MG, UNK
     Dates: start: 20110427
  7. SANDIMMUN NEORAL [Suspect]
     Dosage: 150 MG, UNK
     Dates: start: 20110619
  8. SANDIMMUN NEORAL [Suspect]
     Dosage: 175 MG, UNK
     Dates: start: 20110926
  9. APREDNISLON [Suspect]
     Indication: IMMUNOSUPPRESSION
     Dosage: 15 MG, DAILY
     Route: 048
     Dates: start: 20110121
  10. APREDNISLON [Suspect]
     Dosage: 25 MG, UNK
     Dates: start: 20110221
  11. APREDNISLON [Suspect]
     Dosage: 15 MG, UNK
     Dates: start: 20110427
  12. APREDNISLON [Suspect]
     Dosage: 5 MG, UNK
     Dates: start: 20110619
  13. APREDNISLON [Suspect]
     Dosage: 12.5 MG, UNK
     Dates: start: 20110926
  14. APREDNISLON [Suspect]
     Dosage: 10 MG, UNK
     Dates: start: 20120220
  15. THROMBO ASS [Concomitant]
     Indication: THROMBOSIS PROPHYLAXIS
     Dosage: 100 MG
     Route: 048
     Dates: start: 20110121
  16. ZANTAC [Concomitant]
     Indication: GASTRIC DISORDER
     Dosage: 300 MG
     Route: 047
     Dates: start: 20110203
  17. TORASEMIDE [Concomitant]
     Indication: CORONARY ARTERY DISEASE
     Dosage: 20 MG
     Route: 048
     Dates: start: 20110222
  18. TORASEMIDE [Concomitant]
     Dosage: 10 MG, UNK
     Dates: start: 20110926
  19. ROCALTROL [Concomitant]
     Indication: HYPERPARATHYROIDISM
     Dosage: 0.25 UG
     Route: 048
     Dates: start: 20110223, end: 20110516
  20. INSULIN HUMULIN 70/30 [Concomitant]
     Indication: TYPE 2 DIABETES MELLITUS
     Dosage: UNK
     Route: 058
  21. SEDACORON [Concomitant]
     Indication: CORONARY ARTERY DISEASE
     Dosage: 200 MG
     Route: 048
     Dates: start: 20110122
  22. SEDACORON [Concomitant]
     Dosage: 200 MG, UNK
     Dates: start: 20110221
  23. ALNA [Concomitant]
     Indication: BENIGN PROSTATIC HYPERPLASIA
     Dosage: 0.4 MG
     Route: 048
     Dates: start: 20110204, end: 201105
  24. ALNA [Concomitant]
     Dosage: 0.4 MG, UNK
     Dates: start: 20110221
  25. METHYLPREDNISOLONE [Concomitant]
     Indication: IMMUNOSUPPRESSION
     Dosage: 125 MG, UNK
     Dates: end: 20110221
  26. CLAVAMOX [Concomitant]
     Indication: INFECTION PROPHYLAXIS
     Dosage: 4.4 G, UNK
  27. LOVENOX [Concomitant]
     Indication: THROMBOSIS PROPHYLAXIS
     Dosage: 40 MG, UNK
  28. PRAZOPANT [Concomitant]
     Indication: GASTRIC DISORDER
     Dosage: 80 MG, UNK
  29. FLUIMUCIL [Concomitant]
     Indication: PROPHYLAXIS
     Dosage: 600 MG, UNK
  30. KONAKION [Concomitant]
     Indication: FLUID REPLACEMENT
     Dosage: 40 MG, UNK
  31. LASIX [Concomitant]
     Indication: POLYURIA
     Dosage: 40 MG, UNK
  32. HCT LANNACHER [Concomitant]
     Indication: HYPERTENSION
     Dosage: 50 MG, UNK
  33. PERFALGAN [Concomitant]
     Dosage: 2 G, UNK
  34. BLOPRESS [Concomitant]
     Indication: HYPERTENSION
     Dosage: 16 MG, UNK
  35. BLOPRESS [Concomitant]
     Dosage: 8 MG, UNK
     Dates: start: 20120220
  36. NOMEXOR [Concomitant]
     Indication: CORONARY ARTERY DISEASE
     Dosage: 5 MG, UNK
  37. DIPIDOLOR [Concomitant]
     Dosage: 3 MG, UNK
  38. GELOFUSIN [Concomitant]
     Indication: FLUID REPLACEMENT
     Dosage: 1000 ML, UNK
  39. RINGER LACTAAT [Concomitant]
     Indication: FLUID REPLACEMENT
     Dosage: 500 ML, UNK
  40. LENDORM [Concomitant]
     Indication: SOPOR
     Dosage: 0.25 MG, UNK
  41. URSOFALK [Concomitant]
     Indication: PROPHYLAXIS
     Dosage: 3 DF, UNK
     Dates: start: 20110221
  42. INSULIN MIXTARD [Concomitant]
     Indication: TYPE 1 DIABETES MELLITUS
     Dosage: UNK DEPENDING ON BLOOD GLUCOSE
     Dates: start: 20110221
  43. AMLODIPIN ^ORIFARM^ [Concomitant]
     Indication: HYPERTENSION
     Dosage: 5 MG, UNK
     Dates: start: 20110221
  44. COTRIBENE [Concomitant]
     Indication: ANTIFUNGAL PROPHYLAXIS
     Dosage: 100 MG, 1 X1/MON-WED-FRI
     Dates: start: 20110221
  45. MUCOBENE [Concomitant]
     Indication: PROPHYLAXIS
     Dosage: 600 MG, UNK
     Dates: start: 20110221
  46. LAEVOLAC [Concomitant]
     Indication: CONSTIPATION
     Dosage: UNK 1 X1
     Dates: start: 20110221
  47. CARBIMAZOL [Concomitant]
     Indication: HYPERTHYROIDISM
     Dosage: 10 MG, UNK
     Dates: start: 20110221
  48. AZATHIOPRIN [Concomitant]
     Indication: IMMUNOSUPPRESSION
     Dosage: 50 MG, UNK
     Dates: start: 20110619
  49. AEROMUC [Concomitant]
     Indication: PROPHYLAXIS
     Dosage: 1200 MG, UNK
     Dates: start: 20110619
  50. BERODUALIN [Concomitant]
     Indication: PROPHYLAXIS
     Dosage: UNK 30 DROPS
     Dates: start: 20110619
  51. FRESUBIN [Concomitant]
     Dosage: UNK 3 X 1
     Dates: start: 20110619
  52. NOVORAPID [Concomitant]
     Indication: TYPE 2 DIABETES MELLITUS
     Dosage: UNK DEPENDING ON BLOOD GLUCOSE
     Dates: start: 20110926
  53. CAL-D-VITA [Concomitant]
     Dosage: UNK 1 X 1
     Dates: start: 20110926
  54. TAMSU [Concomitant]
     Dosage: 0.4 MG, UNK
     Dates: start: 20110926
  55. AQUATEARS [Concomitant]
     Dosage: UNK 4 X/DAY
     Dates: start: 20110926
  56. HYDAL [Concomitant]
     Indication: PAIN
     Dosage: UNK ON DEMAND
     Dates: start: 20110926
  57. MOVICOL [Concomitant]
     Dosage: UNK 1 X 1
     Dates: start: 20110926
  58. GUTTALAX [Concomitant]
     Dosage: UNK 10 DROPS ON DEMAND
     Dates: start: 20110926

REACTIONS (12)
  - Peritonitis [Recovered/Resolved]
  - Sepsis [Recovered/Resolved]
  - Renal impairment [Recovered/Resolved]
  - Circulatory collapse [Recovered/Resolved]
  - Blood pressure increased [Unknown]
  - Large intestine perforation [Recovered/Resolved]
  - Diverticulum [Recovered/Resolved]
  - Cytomegalovirus infection [Unknown]
  - Kidney transplant rejection [Recovered/Resolved]
  - Leukopenia [Recovered/Resolved]
  - Haemoglobin decreased [Unknown]
  - Blood glucose increased [Unknown]
